FAERS Safety Report 6271537-8 (Version None)
Quarter: 2009Q3

REPORT INFORMATION
  Report Type: 
  Country: None (occurrence: None)
  Receive Date: 20090717
  Receipt Date: 20090716
  Transmission Date: 20100115
  Serious: Yes (Other)
  Sender: FDA-Public Use
  Company Number: US-PFIZER INC-2002057211

PATIENT
  Sex: Male
  Weight: 122.45 kg

DRUGS (13)
  1. NEURONTIN [Suspect]
     Indication: NEURALGIA
     Dosage: 300 MG, 1X/DAY
     Dates: start: 20020501, end: 20020501
  2. NEURONTIN [Suspect]
     Indication: NEUROSIS
     Dosage: 2400 MG, 1X/DAY
     Dates: start: 20020501
  3. NEURONTIN [Suspect]
     Indication: NEUROMYOPATHY
     Dosage: 1200 MG, 3X/DAY
     Route: 048
     Dates: start: 20020101
  4. NEURONTIN [Suspect]
     Indication: INTERVERTEBRAL DISC PROTRUSION
  5. DARVOCET [Suspect]
     Indication: ILL-DEFINED DISORDER
     Route: 048
  6. FUROSEMIDE [Suspect]
     Indication: FLUID RETENTION
  7. WELLBUTRIN [Suspect]
     Indication: DEPRESSION
     Dosage: DAILY
     Route: 065
     Dates: end: 20050101
  8. ULTRAM [Suspect]
  9. CLONOPIN [Concomitant]
     Route: 048
  10. KLONOPIN [Concomitant]
  11. VIOXX [Concomitant]
     Route: 048
  12. VOLTAREN [Concomitant]
     Route: 065
  13. ULTRAM [Concomitant]
     Dosage: UNK

REACTIONS (36)
  - ABDOMINAL DISCOMFORT [None]
  - ADVERSE EVENT [None]
  - ASTHENIA [None]
  - BACK INJURY [None]
  - BACK PAIN [None]
  - BALANCE DISORDER [None]
  - DEMYELINATION [None]
  - DEPENDENCE [None]
  - DEPRESSION [None]
  - DISABILITY [None]
  - DRUG ADMINISTRATION ERROR [None]
  - DRUG TOLERANCE [None]
  - FALL [None]
  - FATIGUE [None]
  - FEELING ABNORMAL [None]
  - GAIT DISTURBANCE [None]
  - GENERALISED OEDEMA [None]
  - GINGIVAL RECESSION [None]
  - HYPOAESTHESIA [None]
  - INSOMNIA [None]
  - INTENTIONAL OVERDOSE [None]
  - MIGRAINE [None]
  - MUSCLE ATROPHY [None]
  - MUSCLE TIGHTNESS [None]
  - MUSCULAR WEAKNESS [None]
  - MUSCULOSKELETAL CHEST PAIN [None]
  - MUSCULOSKELETAL DISCOMFORT [None]
  - MYALGIA [None]
  - NERVE INJURY [None]
  - NEUROPATHY PERIPHERAL [None]
  - PAIN [None]
  - SKELETAL INJURY [None]
  - SOMATOFORM DISORDER [None]
  - TREMOR [None]
  - WEIGHT INCREASED [None]
  - WEIGHT LOSS POOR [None]
